FAERS Safety Report 9719086 (Version 1)
Quarter: 2013Q4

REPORT INFORMATION
  Report Type: Spontaneous
  Country: GB (occurrence: GB)
  Receive Date: 20131127
  Receipt Date: 20131127
  Transmission Date: 20140711
  Serious: Yes (Other)
  Sender: FDA-Public Use
  Company Number: GB-BAYER-2013-144051

PATIENT
  Age: 26 Year
  Sex: Female

DRUGS (6)
  1. ACETYLSALICYLIC ACID({=100 MG) [Suspect]
     Dosage: 75 MG, QD
  2. ENOXAPARIN [Concomitant]
     Dosage: 40 MG, BID
  3. BETAMETHASONE [Concomitant]
  4. LEVOTHYROXINE [Concomitant]
     Dosage: 50 ?G
  5. LEVOTHYROXINE [Concomitant]
     Dosage: 200 ?G
  6. LEVOTHYROXINE [Concomitant]
     Dosage: 250 ?G

REACTIONS (3)
  - Maternal exposure during pregnancy [None]
  - Foetal hypokinesia [None]
  - Premature delivery [None]
